FAERS Safety Report 9220565 (Version 1)
Quarter: 2013Q2

REPORT INFORMATION
  Report Type: Report from Study
  Country: CA (occurrence: CA)
  Receive Date: 20130409
  Receipt Date: 20130409
  Transmission Date: 20140414
  Serious: Yes (Other)
  Sender: FDA-Public Use
  Company Number: CA-JNJFOC-20130401194

PATIENT
  Sex: Female
  Weight: 67 kg

DRUGS (8)
  1. REMICADE [Suspect]
     Indication: CROHN^S DISEASE
     Route: 042
     Dates: start: 20110111
  2. LACRI-LUBE [Concomitant]
     Dosage: S.O.P OPUNG
     Route: 065
  3. SYSTANE ULTRA [Concomitant]
     Dosage: GTT
     Route: 065
  4. CALTRATE PLUS [Concomitant]
     Route: 065
  5. VIT D [Concomitant]
     Route: 065
  6. OLMETEC [Concomitant]
     Route: 048
  7. ACTONEL [Concomitant]
     Route: 065
  8. CHOLESTYRAMINE [Concomitant]
     Route: 048

REACTIONS (2)
  - VIIth nerve paralysis [Not Recovered/Not Resolved]
  - Herpes zoster oticus [Not Recovered/Not Resolved]
